FAERS Safety Report 14634613 (Version 1)
Quarter: 2018Q1

REPORT INFORMATION
  Report Type: Spontaneous
  Country: US (occurrence: US)
  Receive Date: 20180314
  Receipt Date: 20180314
  Transmission Date: 20180509
  Serious: Yes (Other)
  Sender: FDA-Public Use
  Company Number: US-PFIZER INC-2018072998

PATIENT
  Age: 43 Year
  Sex: Female
  Weight: 63.49 kg

DRUGS (2)
  1. TRAMADOL. [Concomitant]
     Active Substance: TRAMADOL
     Indication: PAIN
     Dosage: 50 MG, AS NEEDED (TWICE DAILY AND UP TO 3 TIMES AS NEEDED)
     Route: 048
     Dates: start: 2017
  2. LYRICA [Suspect]
     Active Substance: PREGABALIN
     Indication: MULTIPLE SCLEROSIS
     Dosage: 225 MG, 2X/DAY (TWICE A DAY)
     Route: 048

REACTIONS (3)
  - Product use in unapproved indication [Unknown]
  - Condition aggravated [Not Recovered/Not Resolved]
  - Multiple sclerosis relapse [Not Recovered/Not Resolved]

NARRATIVE: CASE EVENT DATE: 201802
